FAERS Safety Report 20160550 (Version 2)
Quarter: 2021Q4

REPORT INFORMATION
  Report Type: Spontaneous
  Country: US (occurrence: US)
  Receive Date: 20211208
  Receipt Date: 20211221
  Transmission Date: 20220303
  Serious: Yes (Hospitalization, Other)
  Sender: FDA-Public Use
  Company Number: US-PFIZER INC-202101032192

PATIENT
  Age: 65 Year
  Sex: Male

DRUGS (9)
  1. XELJANZ XR [Suspect]
     Active Substance: TOFACITINIB CITRATE
     Indication: Rheumatoid arthritis
     Dosage: 11 MG, DAILY
     Route: 048
     Dates: start: 20210610
  2. ALLOPURINOL [Concomitant]
     Active Substance: ALLOPURINOL
     Dosage: UNK
  3. SILDENAFIL [Concomitant]
     Active Substance: SILDENAFIL
     Dosage: UNK
  4. TRAMADOL HCL [Concomitant]
     Active Substance: TRAMADOL HYDROCHLORIDE
     Dosage: UNK
  5. IRON [Concomitant]
     Active Substance: IRON
     Dosage: UNK
  6. POTASSIUM CHLORIDE [Concomitant]
     Active Substance: POTASSIUM CHLORIDE
     Dosage: UNK
  7. TAMSULOSIN HYDROCHLORIDE [Concomitant]
     Active Substance: TAMSULOSIN HYDROCHLORIDE
     Dosage: UNK
  8. OMEPRAZOLE [Concomitant]
     Active Substance: OMEPRAZOLE
     Dosage: UNK
  9. AMLODIPINE BESYLATE 10 [Concomitant]
     Dosage: UNK

REACTIONS (8)
  - Hallucination [Not Recovered/Not Resolved]
  - Blood carbon monoxide increased [Unknown]
  - Oxygen saturation decreased [Unknown]
  - Abnormal dreams [Unknown]
  - Headache [Unknown]
  - Fatigue [Unknown]
  - Dizziness [Unknown]
  - Somnolence [Unknown]

NARRATIVE: CASE EVENT DATE: 20210101
